FAERS Safety Report 9352757 (Version 1)
Quarter: 2013Q2

REPORT INFORMATION
  Report Type: Spontaneous
  Country: US (occurrence: None)
  Receive Date: 20130614
  Receipt Date: 20130614
  Transmission Date: 20140414
  Serious: Yes (Other)
  Sender: FDA-Public Use
  Company Number: None

PATIENT
  Sex: Female
  Weight: 132 kg

DRUGS (1)
  1. JOHNSONS BABY POWDER [Suspect]
     Dosage: A HANDFUL AT A TIME
     Route: 048

REACTIONS (3)
  - Incorrect route of drug administration [None]
  - Vomiting [None]
  - Dyspnoea [None]
